FAERS Safety Report 9012228 (Version 2)
Quarter: 2013Q1

REPORT INFORMATION
  Report Type: Spontaneous
  Country: IT (occurrence: IT)
  Receive Date: 20130114
  Receipt Date: 20130128
  Transmission Date: 20140127
  Serious: Yes (Death, Hospitalization, Other)
  Sender: FDA-Public Use
  Company Number: IT-ELI_LILLY_AND_COMPANY-IT201301001658

PATIENT
  Age: 49 Year
  Sex: Male

DRUGS (2)
  1. ZYPREXA [Suspect]
     Indication: PSYCHOTIC DISORDER
     Dosage: 10 MG, BID
     Route: 048
     Dates: start: 20111108, end: 20121108
  2. HALDOL [Concomitant]
     Dosage: 20 GTT, BID
     Route: 048

REACTIONS (6)
  - Cardio-respiratory arrest [Fatal]
  - Septic shock [Fatal]
  - Hypertension [Unknown]
  - Type 2 diabetes mellitus [Unknown]
  - Dyslipidaemia [Unknown]
  - Overdose [Unknown]
